FAERS Safety Report 5382236-9 (Version None)
Quarter: 2007Q3

REPORT INFORMATION
  Report Type: 
  Country: None (occurrence: None)
  Receive Date: 20070709
  Receipt Date: 20070627
  Transmission Date: 20080115
  Serious: Yes (Other)
  Sender: FDA-Public Use
  Company Number: US-PFIZER INC-2007054158

PATIENT
  Sex: Female
  Weight: 70 kg

DRUGS (2)
  1. NEURONTIN [Suspect]
     Indication: MUSCULOSKELETAL DISCOMFORT
     Dates: start: 20040101, end: 20050101
  2. LYRICA [Suspect]
     Indication: SCIATICA

REACTIONS (5)
  - CERVIX OPERATION [None]
  - FATIGUE [None]
  - FEELING ABNORMAL [None]
  - INCREASED APPETITE [None]
  - SURGERY [None]
